FAERS Safety Report 21961055 (Version 3)
Quarter: 2023Q2

REPORT INFORMATION
  Report Type: Spontaneous
  Country: US (occurrence: US)
  Receive Date: 20230207
  Receipt Date: 20230525
  Transmission Date: 20230722
  Serious: No
  Sender: FDA-Public Use
  Company Number: US-BRISTOL-MYERS SQUIBB COMPANY-2023-017483

PATIENT
  Age: 61 Year
  Sex: Female

DRUGS (2)
  1. ORENCIA [Suspect]
     Active Substance: ABATACEPT
     Indication: Rheumatoid arthritis
     Dosage: ACE9100  31-08-2024
     Route: 058
     Dates: start: 20230111
  2. ORENCIA [Suspect]
     Active Substance: ABATACEPT
     Dosage: ACE9100  31-08-2024
     Route: 058
     Dates: start: 202301

REACTIONS (4)
  - Injection site swelling [Unknown]
  - Nasopharyngitis [Unknown]
  - Oropharyngeal pain [Unknown]
  - Injection site pruritus [Recovered/Resolved]
